FAERS Safety Report 7461972-4 (Version None)
Quarter: 2011Q2

REPORT INFORMATION
  Report Type: 
  Country: None (occurrence: None)
  Receive Date: 20110506
  Receipt Date: 20110103
  Transmission Date: 20111010
  Serious: Yes (Other)
  Sender: FDA-Public Use
  Company Number: DE-BAYER-2011-000304

PATIENT
  Age: 33 Year
  Weight: 62 kg

DRUGS (1)
  1. MIRENA [Suspect]
     Indication: CONTRACEPTION
     Dosage: UNK
     Route: 015
     Dates: start: 20100430, end: 20101104

REACTIONS (3)
  - VAGINAL HAEMORRHAGE [None]
  - ECTOPIC PREGNANCY [None]
  - ABDOMINAL PAIN LOWER [None]
